FAERS Safety Report 5852327-4 (Version None)
Quarter: 2008Q3

REPORT INFORMATION
  Report Type: 
  Country: None (occurrence: None)
  Receive Date: 20080821
  Receipt Date: 20080819
  Transmission Date: 20090109
  Serious: Yes (Other)
  Sender: FDA-Public Use
  Company Number: PHEH2008US07289

PATIENT
  Sex: Female

DRUGS (7)
  1. PARLODEL [Suspect]
     Indication: PITUITARY TUMOUR BENIGN
     Dosage: 2.5 MG, QD
  2. PROTONIX [Concomitant]
     Dosage: 40 MG, QD
  3. ARTHROTEC [Concomitant]
     Dosage: 200 MG, QD
  4. CLIMARA [Concomitant]
  5. KLONOPIN [Concomitant]
     Dosage: 1 MG HS AND 0.5 MG IN THE MORNING
  6. LYRICA [Concomitant]
  7. XANAX [Concomitant]
     Dosage: 10 MG, QD

REACTIONS (3)
  - ANKLE FRACTURE [None]
  - IMPAIRED HEALING [None]
  - SURGERY [None]
